FAERS Safety Report 17550918 (Version 5)
Quarter: 2025Q3

REPORT INFORMATION
  Report Type: Spontaneous
  Country: EU (occurrence: EU)
  Receive Date: 20200317
  Receipt Date: 20250923
  Transmission Date: 20251020
  Serious: Yes (Hospitalization, Other)
  Sender: MYLAN
  Company Number: EU-TEVA-2020-PL-1183438

PATIENT
  Age: 40 Year
  Sex: Female
  Weight: 64 kg

DRUGS (80)
  1. TACROLIMUS [Suspect]
     Active Substance: TACROLIMUS
     Indication: Immunosuppressant drug therapy
     Route: 065
  2. TACROLIMUS [Suspect]
     Active Substance: TACROLIMUS
     Indication: Renal transplant
  3. TACROLIMUS [Suspect]
     Active Substance: TACROLIMUS
  4. TACROLIMUS [Suspect]
     Active Substance: TACROLIMUS
     Route: 065
  5. TACROLIMUS [Suspect]
     Active Substance: TACROLIMUS
     Dosage: 12 MILLIGRAM, QD (DOSE RECOMMENDED AT DISCHARGE FROM THE HOSPITAL: 2 X 6 MG), 6 MG, BID (10.6 NG/ML)
     Route: 065
  6. TACROLIMUS [Suspect]
     Active Substance: TACROLIMUS
     Dosage: 12 MILLIGRAM, QD (DOSE RECOMMENDED AT DISCHARGE FROM THE HOSPITAL: 2 X 6 MG), 6 MG, BID (10.6 NG/ML)
     Route: 065
  7. TACROLIMUS [Suspect]
     Active Substance: TACROLIMUS
     Dosage: 12 MILLIGRAM, QD (DOSE RECOMMENDED AT DISCHARGE FROM THE HOSPITAL: 2 X 6 MG), 6 MG, BID (10.6 NG/ML)
  8. TACROLIMUS [Suspect]
     Active Substance: TACROLIMUS
     Dosage: 12 MILLIGRAM, QD (DOSE RECOMMENDED AT DISCHARGE FROM THE HOSPITAL: 2 X 6 MG), 6 MG, BID (10.6 NG/ML)
  9. TACROLIMUS [Suspect]
     Active Substance: TACROLIMUS
     Dosage: 6 MILLIGRAM, QD (2 X 3 MG)
     Route: 065
  10. TACROLIMUS [Suspect]
     Active Substance: TACROLIMUS
     Dosage: 6 MILLIGRAM, QD (2 X 3 MG)
     Route: 065
  11. TACROLIMUS [Suspect]
     Active Substance: TACROLIMUS
     Dosage: 6 MILLIGRAM, QD (2 X 3 MG)
  12. TACROLIMUS [Suspect]
     Active Substance: TACROLIMUS
     Dosage: 6 MILLIGRAM, QD (2 X 3 MG)
  13. TACROLIMUS [Suspect]
     Active Substance: TACROLIMUS
     Dosage: 10 MILLIGRAM, QD (2 X 5 MG)
     Route: 065
  14. TACROLIMUS [Suspect]
     Active Substance: TACROLIMUS
     Dosage: 10 MILLIGRAM, QD (2 X 5 MG)
  15. TACROLIMUS [Suspect]
     Active Substance: TACROLIMUS
     Dosage: 10 MILLIGRAM, QD (2 X 5 MG)
  16. TACROLIMUS [Suspect]
     Active Substance: TACROLIMUS
     Dosage: 10 MILLIGRAM, QD (2 X 5 MG)
     Route: 065
  17. TACROLIMUS [Suspect]
     Active Substance: TACROLIMUS
     Dosage: 3 MILLIGRAM, BID, 6 MG, TWICE DAILY (CONCENTRATION OF 10.6 NG/ML)
  18. TACROLIMUS [Suspect]
     Active Substance: TACROLIMUS
     Dosage: 3 MILLIGRAM, BID, 6 MG, TWICE DAILY (CONCENTRATION OF 10.6 NG/ML)
     Route: 065
  19. TACROLIMUS [Suspect]
     Active Substance: TACROLIMUS
     Dosage: 3 MILLIGRAM, BID, 6 MG, TWICE DAILY (CONCENTRATION OF 10.6 NG/ML)
     Route: 065
  20. TACROLIMUS [Suspect]
     Active Substance: TACROLIMUS
     Dosage: 3 MILLIGRAM, BID, 6 MG, TWICE DAILY (CONCENTRATION OF 10.6 NG/ML)
  21. TACROLIMUS [Suspect]
     Active Substance: TACROLIMUS
     Dosage: 12 MILLIGRAM, QD (DRUG DOSE ON DISCHARGE: 2 X 6 MG/DOSE)
  22. TACROLIMUS [Suspect]
     Active Substance: TACROLIMUS
     Dosage: 12 MILLIGRAM, QD (DRUG DOSE ON DISCHARGE: 2 X 6 MG/DOSE)
     Route: 065
  23. TACROLIMUS [Suspect]
     Active Substance: TACROLIMUS
     Dosage: 12 MILLIGRAM, QD (DRUG DOSE ON DISCHARGE: 2 X 6 MG/DOSE)
     Route: 065
  24. TACROLIMUS [Suspect]
     Active Substance: TACROLIMUS
     Dosage: 12 MILLIGRAM, QD (DRUG DOSE ON DISCHARGE: 2 X 6 MG/DOSE)
  25. TACROLIMUS [Suspect]
     Active Substance: TACROLIMUS
     Dosage: 12 MILLIGRAM, QD, DOSE RECOMMENDED AT DISCHARGE FROM THE HOSPITAL
     Route: 065
  26. TACROLIMUS [Suspect]
     Active Substance: TACROLIMUS
     Dosage: 12 MILLIGRAM, QD, DOSE RECOMMENDED AT DISCHARGE FROM THE HOSPITAL
  27. TACROLIMUS [Suspect]
     Active Substance: TACROLIMUS
     Dosage: 12 MILLIGRAM, QD, DOSE RECOMMENDED AT DISCHARGE FROM THE HOSPITAL
     Route: 065
  28. TACROLIMUS [Suspect]
     Active Substance: TACROLIMUS
     Dosage: 12 MILLIGRAM, QD, DOSE RECOMMENDED AT DISCHARGE FROM THE HOSPITAL
  29. TACROLIMUS [Suspect]
     Active Substance: TACROLIMUS
     Dosage: 3 MILLIGRAM, BID, 3 MG, Q12H
     Route: 065
  30. TACROLIMUS [Suspect]
     Active Substance: TACROLIMUS
     Dosage: 3 MILLIGRAM, BID, 3 MG, Q12H
  31. TACROLIMUS [Suspect]
     Active Substance: TACROLIMUS
     Dosage: 3 MILLIGRAM, BID, 3 MG, Q12H
     Route: 065
  32. TACROLIMUS [Suspect]
     Active Substance: TACROLIMUS
     Dosage: 3 MILLIGRAM, BID, 3 MG, Q12H
  33. MYCOPHENOLATE MOFETIL [Suspect]
     Active Substance: MYCOPHENOLATE MOFETIL
     Indication: Immunosuppressant drug therapy
     Route: 065
  34. MYCOPHENOLATE MOFETIL [Suspect]
     Active Substance: MYCOPHENOLATE MOFETIL
     Indication: Renal transplant
  35. MYCOPHENOLATE MOFETIL [Suspect]
     Active Substance: MYCOPHENOLATE MOFETIL
  36. MYCOPHENOLATE MOFETIL [Suspect]
     Active Substance: MYCOPHENOLATE MOFETIL
     Route: 065
  37. MYCOPHENOLATE MOFETIL [Suspect]
     Active Substance: MYCOPHENOLATE MOFETIL
     Dosage: 500 MILLIGRAM, QD (2 X 250 MG)
     Route: 065
     Dates: start: 2003
  38. MYCOPHENOLATE MOFETIL [Suspect]
     Active Substance: MYCOPHENOLATE MOFETIL
     Dosage: 500 MILLIGRAM, QD (2 X 250 MG)
     Dates: start: 2003
  39. MYCOPHENOLATE MOFETIL [Suspect]
     Active Substance: MYCOPHENOLATE MOFETIL
     Dosage: 500 MILLIGRAM, QD (2 X 250 MG)
     Dates: start: 2003
  40. MYCOPHENOLATE MOFETIL [Suspect]
     Active Substance: MYCOPHENOLATE MOFETIL
     Dosage: 500 MILLIGRAM, QD (2 X 250 MG)
     Route: 065
     Dates: start: 2003
  41. MYCOPHENOLATE MOFETIL [Suspect]
     Active Substance: MYCOPHENOLATE MOFETIL
     Dosage: 2000 MILLIGRAM, QD (2 X 1000 MG)
     Route: 065
     Dates: start: 2004
  42. MYCOPHENOLATE MOFETIL [Suspect]
     Active Substance: MYCOPHENOLATE MOFETIL
     Dosage: 2000 MILLIGRAM, QD (2 X 1000 MG)
     Dates: start: 2004
  43. MYCOPHENOLATE MOFETIL [Suspect]
     Active Substance: MYCOPHENOLATE MOFETIL
     Dosage: 2000 MILLIGRAM, QD (2 X 1000 MG)
     Dates: start: 2004
  44. MYCOPHENOLATE MOFETIL [Suspect]
     Active Substance: MYCOPHENOLATE MOFETIL
     Dosage: 2000 MILLIGRAM, QD (2 X 1000 MG)
     Route: 065
     Dates: start: 2004
  45. MYCOPHENOLATE MOFETIL [Suspect]
     Active Substance: MYCOPHENOLATE MOFETIL
     Dosage: 1 GRAM, QD (DOSE RECOMMENDED AT DISCHARGE FROM THE HOSPITAL: 2 X 0.5 G)
  46. MYCOPHENOLATE MOFETIL [Suspect]
     Active Substance: MYCOPHENOLATE MOFETIL
     Dosage: 1 GRAM, QD (DOSE RECOMMENDED AT DISCHARGE FROM THE HOSPITAL: 2 X 0.5 G)
  47. MYCOPHENOLATE MOFETIL [Suspect]
     Active Substance: MYCOPHENOLATE MOFETIL
     Dosage: 1 GRAM, QD (DOSE RECOMMENDED AT DISCHARGE FROM THE HOSPITAL: 2 X 0.5 G)
     Route: 065
  48. MYCOPHENOLATE MOFETIL [Suspect]
     Active Substance: MYCOPHENOLATE MOFETIL
     Dosage: 1 GRAM, QD (DOSE RECOMMENDED AT DISCHARGE FROM THE HOSPITAL: 2 X 0.5 G)
     Route: 065
  49. PREDNISONE [Suspect]
     Active Substance: PREDNISONE
     Indication: Immunosuppressant drug therapy
     Dosage: 15 MILLIGRAM, QD (DRUG DOSES ON DISCHARGE)
  50. PREDNISONE [Suspect]
     Active Substance: PREDNISONE
     Indication: Renal transplant
     Dosage: 15 MILLIGRAM, QD (DRUG DOSES ON DISCHARGE)
  51. PREDNISONE [Suspect]
     Active Substance: PREDNISONE
     Dosage: 15 MILLIGRAM, QD (DRUG DOSES ON DISCHARGE)
     Route: 065
  52. PREDNISONE [Suspect]
     Active Substance: PREDNISONE
     Dosage: 15 MILLIGRAM, QD (DRUG DOSES ON DISCHARGE)
     Route: 065
  53. PREDNISONE [Suspect]
     Active Substance: PREDNISONE
  54. PREDNISONE [Suspect]
     Active Substance: PREDNISONE
     Route: 065
  55. PREDNISONE [Suspect]
     Active Substance: PREDNISONE
  56. PREDNISONE [Suspect]
     Active Substance: PREDNISONE
     Route: 065
  57. PREDNISONE [Suspect]
     Active Substance: PREDNISONE
     Dosage: 5 MILLIGRAM X 1
  58. PREDNISONE [Suspect]
     Active Substance: PREDNISONE
     Dosage: 5 MILLIGRAM X 1
  59. PREDNISONE [Suspect]
     Active Substance: PREDNISONE
     Dosage: 5 MILLIGRAM X 1
     Route: 065
  60. PREDNISONE [Suspect]
     Active Substance: PREDNISONE
     Dosage: 5 MILLIGRAM X 1
     Route: 065
  61. PREDNISONE [Suspect]
     Active Substance: PREDNISONE
  62. PREDNISONE [Suspect]
     Active Substance: PREDNISONE
  63. PREDNISONE [Suspect]
     Active Substance: PREDNISONE
     Route: 065
  64. PREDNISONE [Suspect]
     Active Substance: PREDNISONE
     Route: 065
  65. PREDNISONE [Suspect]
     Active Substance: PREDNISONE
     Route: 065
  66. PREDNISONE [Suspect]
     Active Substance: PREDNISONE
     Route: 065
  67. PREDNISONE [Suspect]
     Active Substance: PREDNISONE
  68. PREDNISONE [Suspect]
     Active Substance: PREDNISONE
  69. PREDNISONE [Suspect]
     Active Substance: PREDNISONE
  70. PREDNISONE [Suspect]
     Active Substance: PREDNISONE
  71. PREDNISONE [Suspect]
     Active Substance: PREDNISONE
     Route: 065
  72. PREDNISONE [Suspect]
     Active Substance: PREDNISONE
     Route: 065
  73. PREDNISONE [Suspect]
     Active Substance: PREDNISONE
  74. PREDNISONE [Suspect]
     Active Substance: PREDNISONE
  75. PREDNISONE [Suspect]
     Active Substance: PREDNISONE
     Route: 065
  76. PREDNISONE [Suspect]
     Active Substance: PREDNISONE
     Route: 065
  77. AMLODIPINE [Concomitant]
     Active Substance: AMLODIPINE BESYLATE
     Indication: Product used for unknown indication
     Dosage: 10 MILLIGRAM, QD
  78. AMLODIPINE [Concomitant]
     Active Substance: AMLODIPINE BESYLATE
     Dosage: 10 MILLIGRAM, QD
     Route: 065
  79. AMLODIPINE [Concomitant]
     Active Substance: AMLODIPINE BESYLATE
     Dosage: 10 MILLIGRAM, QD
     Route: 065
  80. AMLODIPINE [Concomitant]
     Active Substance: AMLODIPINE BESYLATE
     Dosage: 10 MILLIGRAM, QD

REACTIONS (5)
  - New onset diabetes after transplantation [Recovered/Resolved]
  - Diabetes mellitus [Recovered/Resolved]
  - Micturition urgency [Unknown]
  - Thirst [Unknown]
  - Product use in unapproved indication [Unknown]

NARRATIVE: CASE EVENT DATE: 20030101
